FAERS Safety Report 8809317 (Version 1)
Quarter: 2012Q4

REPORT INFORMATION
  Report Type: 
  Country: DE (occurrence: DE)
  Receive Date: 20120926
  Receipt Date: 20120926
  Transmission Date: 20130627
  Serious: Yes (Hospitalization)
  Sender: FDA-Public Use
  Company Number: DE-PFIZER INC-2012233550

PATIENT
  Age: 26 Year
  Sex: Female

DRUGS (12)
  1. GENOTROPIN [Suspect]
     Indication: HYPOPITUITARISM
     Dosage: 0.8 mg, 7 injections/week
     Route: 058
     Dates: start: 20040720
  2. TRISEKVENS FORTE [Concomitant]
     Indication: BLOOD LUTEINISING HORMONE DECREASED
     Dosage: UNK
     Dates: start: 20031113
  3. TRISEKVENS FORTE [Concomitant]
     Indication: BLOOD FOLLICLE STIMULATING HORMONE DECREASED
  4. TRISEKVENS FORTE [Concomitant]
     Indication: HYPOGONADISM FEMALE
  5. PROTHYRID [Concomitant]
     Indication: HYPOTHYROIDISM
     Dosage: UNK
     Dates: start: 20040806
  6. DESMOPRESSIN [Concomitant]
     Indication: BLOOD ANTIDIURETIC HORMONE DECREASED
     Dosage: UNK
     Dates: start: 20031113
  7. GYNOKADIN GEL [Concomitant]
     Indication: BLOOD LUTEINISING HORMONE DECREASED
     Dosage: UNK
     Dates: start: 20050706
  8. GYNOKADIN GEL [Concomitant]
     Indication: BLOOD FOLLICLE STIMULATING HORMONE DECREASED
  9. GYNOKADIN GEL [Concomitant]
     Indication: HYPOGONADISM FEMALE
  10. UTROGEST [Concomitant]
     Indication: BLOOD LUTEINISING HORMONE DECREASED
     Dosage: UNK
     Dates: start: 20050706
  11. UTROGEST [Concomitant]
     Indication: BLOOD FOLLICLE STIMULATING HORMONE DECREASED
  12. UTROGEST [Concomitant]
     Indication: HYPOGONADISM FEMALE

REACTIONS (1)
  - Reproductive tract disorder [Unknown]
